FAERS Safety Report 9478000 (Version 2)
Quarter: 2013Q4

REPORT INFORMATION
  Report Type: Spontaneous
  Country: US (occurrence: None)
  Receive Date: 20130822
  Receipt Date: 20131120
  Transmission Date: 20140711
  Serious: Yes (Hospitalization, Other)
  Sender: FDA-Public Use
  Company Number: JPI-P-034477

PATIENT
  Age: 42 Year
  Sex: Female
  Weight: 116.12 kg

DRUGS (1)
  1. XYREM [Suspect]
     Indication: CATAPLEXY
     Dosage: 4.5GM (2.25GM, 2 IN 1D) ORAL
     Route: 048
     Dates: start: 20070913, end: 2007

REACTIONS (6)
  - Convulsion [None]
  - Tremor [None]
  - Condition aggravated [None]
  - Suicidal ideation [None]
  - Emotional disorder [None]
  - Speech disorder [None]
